FAERS Safety Report 7325416-5 (Version None)
Quarter: 2011Q1

REPORT INFORMATION
  Report Type: 
  Country: None (occurrence: None)
  Receive Date: 20110218
  Receipt Date: 20110204
  Transmission Date: 20110831
  Serious: Yes (Death, Hospitalization, Other)
  Sender: FDA-Public Use
  Company Number: 2011MA001219

PATIENT
  Sex: Female

DRUGS (1)
  1. NAPROXEN [Suspect]
     Indication: BACK PAIN

REACTIONS (7)
  - DYSARTHRIA [None]
  - RESPIRATORY ARREST [None]
  - CARDIAC ARREST [None]
  - ECONOMIC PROBLEM [None]
  - MOTOR NEURONE DISEASE [None]
  - IMPAIRED WORK ABILITY [None]
  - LOWER RESPIRATORY TRACT INFECTION [None]
